FAERS Safety Report 25804424 (Version 1)
Quarter: 2025Q3

REPORT INFORMATION
  Report Type: Spontaneous
  Country: BR (occurrence: BR)
  Receive Date: 20250915
  Receipt Date: 20250915
  Transmission Date: 20251021
  Serious: Yes (Other)
  Sender: NOVARTIS
  Company Number: BR-002147023-NVSC2025BR138647

PATIENT
  Age: 16 Year
  Sex: Female

DRUGS (17)
  1. ELTROMBOPAG [Suspect]
     Active Substance: ELTROMBOPAG
     Indication: Immune thrombocytopenia
     Dosage: 25 MG, QD
     Route: 065
     Dates: start: 20230403, end: 202304
  2. ELTROMBOPAG [Suspect]
     Active Substance: ELTROMBOPAG
     Dosage: 50 MG, QD
     Route: 065
     Dates: start: 20230418
  3. PREDNISONE [Suspect]
     Active Substance: PREDNISONE
     Indication: Immune thrombocytopenia
     Dosage: 1 MG/KG/DAY
     Route: 065
     Dates: start: 20230320
  4. PREDNISONE [Suspect]
     Active Substance: PREDNISONE
     Dosage: 60 MG, QD
     Route: 065
     Dates: start: 20230327
  5. PREDNISONE [Suspect]
     Active Substance: PREDNISONE
     Dosage: 60 MG, QD
     Route: 065
     Dates: start: 20230328
  6. PREDNISONE [Suspect]
     Active Substance: PREDNISONE
     Dosage: 40 MG, QD
     Route: 065
     Dates: start: 20230419
  7. PREDNISONE [Suspect]
     Active Substance: PREDNISONE
     Dosage: 20 MG, QD
     Route: 065
     Dates: start: 20230501
  8. PREDNISONE [Suspect]
     Active Substance: PREDNISONE
     Dosage: 10 MG, QD
     Route: 065
     Dates: start: 20230506
  9. HUMAN IMMUNOGLOBULIN G [Suspect]
     Active Substance: HUMAN IMMUNOGLOBULIN G
     Indication: Immune thrombocytopenia
     Route: 065
     Dates: start: 2023
  10. HUMAN IMMUNOGLOBULIN G [Suspect]
     Active Substance: HUMAN IMMUNOGLOBULIN G
     Dosage: 70 G, QD
     Route: 065
     Dates: start: 20230411
  11. HUMAN IMMUNOGLOBULIN G [Suspect]
     Active Substance: HUMAN IMMUNOGLOBULIN G
     Dosage: 70 G, QD
     Route: 065
     Dates: start: 20230412
  12. HUMAN IMMUNOGLOBULIN G [Suspect]
     Active Substance: HUMAN IMMUNOGLOBULIN G
     Route: 065
     Dates: start: 20230503
  13. HUMAN IMMUNOGLOBULIN G [Suspect]
     Active Substance: HUMAN IMMUNOGLOBULIN G
     Dosage: 30 G, QD
     Route: 065
     Dates: start: 20230514
  14. METHYLPREDNISOLONE [Suspect]
     Active Substance: METHYLPREDNISOLONE
     Indication: Immune thrombocytopenia
     Route: 065
     Dates: start: 2023, end: 2023
  15. OXYTOCIN [Concomitant]
     Active Substance: OXYTOCIN
     Indication: Uterine hypotonus
     Route: 065
     Dates: start: 20130515
  16. ERGOTAMINE [Concomitant]
     Active Substance: CAFFEINE\ERGOTAMINE\ERGOTAMINE TARTRATE
     Indication: Uterine hypotonus
     Route: 065
     Dates: start: 20230515
  17. MISOPROSTOL [Concomitant]
     Active Substance: MISOPROSTOL
     Indication: Uterine hypotonus
     Route: 065
     Dates: start: 20230515

REACTIONS (4)
  - Premature delivery [Unknown]
  - Uterine hypotonus [Unknown]
  - Maternal exposure during pregnancy [Unknown]
  - Drug ineffective [Unknown]

NARRATIVE: CASE EVENT DATE: 20230515
